FAERS Safety Report 8989792 (Version 3)
Quarter: 2013Q2

REPORT INFORMATION
  Report Type: Spontaneous
  Country: IT (occurrence: IT)
  Receive Date: 20121228
  Receipt Date: 20130402
  Transmission Date: 20140414
  Serious: Yes (Hospitalization)
  Sender: FDA-Public Use
  Company Number: IT-PFIZER INC-2012331143

PATIENT
  Age: 84 Year
  Sex: Male

DRUGS (7)
  1. ZOLOFT [Suspect]
     Indication: DEPRESSION
     Dosage: UNK
     Dates: start: 20110301
  2. COUMADIN [Suspect]
     Indication: ATRIAL FIBRILLATION
     Dosage: 1 UNIT DOSE AS NEEDED
     Route: 048
     Dates: start: 20110501
  3. SEROQUEL [Suspect]
     Indication: DEPRESSION
     Dosage: 1 UNIT DOSE DAILY
     Route: 048
     Dates: start: 20110301
  4. LASIX [Concomitant]
     Dosage: 1 UNIT DOSE, UNK
     Route: 048
  5. LOVINACOR [Concomitant]
     Dosage: 1 UNIT DOSE, UNK
     Route: 048
  6. MINITRAN [Concomitant]
     Dosage: 1 UNIT DOSE, UNK
     Route: 062
  7. CONGESCOR [Concomitant]
     Dosage: 1 UNIT DOSE, UNK
     Route: 048

REACTIONS (2)
  - Rectal haemorrhage [Recovering/Resolving]
  - International normalised ratio increased [Recovering/Resolving]
